FAERS Safety Report 7335166-7 (Version None)
Quarter: 2011Q1

REPORT INFORMATION
  Report Type: 
  Country: None (occurrence: None)
  Receive Date: 20110307
  Receipt Date: 20110228
  Transmission Date: 20110831
  Serious: Yes (Hospitalization)
  Sender: FDA-Public Use
  Company Number: JP-JNJFOC-20101202844

PATIENT
  Sex: Male

DRUGS (12)
  1. TOPIRAMATE [Suspect]
     Indication: EPILEPSY
     Route: 048
  2. ALEVIATIN [Concomitant]
     Indication: EPILEPSY
     Route: 048
  3. AZUNOL [Concomitant]
     Route: 048
  4. PLAVIX [Concomitant]
     Route: 048
  5. LAMICTAL [Concomitant]
     Indication: EPILEPSY
     Route: 048
  6. GASPORT [Concomitant]
     Route: 048
  7. AMARYL [Concomitant]
     Route: 048
  8. GLAKAY [Concomitant]
     Route: 048
  9. JANUVIA [Concomitant]
     Route: 048
  10. TOPIRAMATE [Suspect]
     Route: 048
  11. ADALAT CC [Concomitant]
     Route: 048
  12. EPALRESTAT [Concomitant]
     Route: 048

REACTIONS (1)
  - HALLUCINATION, VISUAL [None]
